FAERS Safety Report 6537882-3 (Version None)
Quarter: 2010Q1

REPORT INFORMATION
  Report Type: 
  Country: None (occurrence: None)
  Receive Date: 20100114
  Receipt Date: 20100107
  Transmission Date: 20100710
  Serious: Yes (Other)
  Sender: FDA-Public Use
  Company Number: US-AMGEN-QUU384280

PATIENT
  Sex: Male

DRUGS (1)
  1. ENBREL [Suspect]
     Indication: PSORIASIS
     Route: 058
     Dates: start: 20060301

REACTIONS (8)
  - BLOOD CHOLESTEROL INCREASED [None]
  - CONTUSION [None]
  - DIABETES MELLITUS [None]
  - INJECTION SITE PAIN [None]
  - NAIL INFECTION [None]
  - PSORIASIS [None]
  - SKIN ATROPHY [None]
  - THERAPEUTIC RESPONSE DECREASED [None]
